FAERS Safety Report 7166717-3 (Version None)
Quarter: 2010Q4

REPORT INFORMATION
  Report Type: 
  Country: None (occurrence: None)
  Receive Date: 20101216
  Receipt Date: 20101208
  Transmission Date: 20110411
  Serious: Yes (Hospitalization, Other)
  Sender: FDA-Public Use
  Company Number: US-ROCHE-727264

PATIENT
  Sex: Male
  Weight: 47.6 kg

DRUGS (2)
  1. ACCUTANE [Suspect]
     Indication: ACNE
     Route: 065
     Dates: start: 19900101, end: 19910101
  2. ACCUTANE [Suspect]
     Route: 065
     Dates: start: 19911111

REACTIONS (7)
  - CHRONIC FATIGUE SYNDROME [None]
  - CROHN'S DISEASE [None]
  - DEPRESSION [None]
  - ENTEROVESICAL FISTULA [None]
  - GASTROINTESTINAL INJURY [None]
  - INFLAMMATORY BOWEL DISEASE [None]
  - SMALL INTESTINAL OBSTRUCTION [None]
